FAERS Safety Report 6055696-8 (Version None)
Quarter: 2009Q1

REPORT INFORMATION
  Report Type: 
  Country: None (occurrence: None)
  Receive Date: 20090128
  Receipt Date: 20090121
  Transmission Date: 20090719
  Serious: Yes (Hospitalization)
  Sender: FDA-Public Use
  Company Number: FR-AVENTIS-200910225FR

PATIENT
  Age: 89 Year
  Sex: Female

DRUGS (4)
  1. AMARYL [Suspect]
     Route: 048
     Dates: start: 20060101, end: 20081102
  2. NOVONORM [Suspect]
     Route: 048
     Dates: start: 20080301, end: 20081102
  3. BETARSEC [Concomitant]
     Indication: DRUG USE FOR UNKNOWN INDICATION
     Route: 048
     Dates: start: 20080101, end: 20081102
  4. TANGANIL                           /00129601/ [Concomitant]
     Indication: DRUG USE FOR UNKNOWN INDICATION
     Route: 048
     Dates: start: 20080101, end: 20081102

REACTIONS (2)
  - FALL [None]
  - HYPOGLYCAEMIA [None]
